FAERS Safety Report 14424509 (Version 2)
Quarter: 2018Q2

REPORT INFORMATION
  Report Type: Spontaneous
  Country: US (occurrence: US)
  Receive Date: 20180123
  Receipt Date: 20180516
  Transmission Date: 20180711
  Serious: Yes (Other)
  Sender: FDA-Public Use
  Company Number: US-BAYER-2018-014069

PATIENT
  Age: 38 Year
  Sex: Female
  Weight: 51.7 kg

DRUGS (2)
  1. MIRENA [Suspect]
     Active Substance: LEVONORGESTREL
     Indication: CONTRACEPTION
  2. MIRENA [Suspect]
     Active Substance: LEVONORGESTREL
     Indication: CONTRACEPTION
     Dosage: 20 MCG/24HR, CONT
     Route: 015
     Dates: start: 20171128, end: 20171228

REACTIONS (4)
  - Procedural haemorrhage [None]
  - Device expulsion [None]
  - Abdominal pain lower [None]
  - Ovarian cyst [None]

NARRATIVE: CASE EVENT DATE: 20171128
